FAERS Safety Report 5162411-9 (Version None)
Quarter: 2006Q4

REPORT INFORMATION
  Report Type: 
  Country: None (occurrence: None)
  Receive Date: 20061128
  Receipt Date: 20061128
  Transmission Date: 20070319
  Serious: Yes (Life-Threatening, Hospitalization, Congenital Anomaly)
  Sender: FDA-Public Use
  Company Number: None

PATIENT
  Age: 57 Year
  Sex: Female
  Weight: 92.5338 kg

DRUGS (1)
  1. ZOLOFT [Suspect]
     Indication: DEPRESSION
     Dosage: AM MOUTH
     Route: 048
     Dates: start: 20060701, end: 20061001

REACTIONS (3)
  - EMOTIONAL DISORDER [None]
  - FLAT AFFECT [None]
  - THERAPY NON-RESPONDER [None]
